FAERS Safety Report 5887687-1 (Version None)
Quarter: 2008Q3

REPORT INFORMATION
  Report Type: 
  Country: None (occurrence: None)
  Receive Date: 20080918
  Receipt Date: 20080916
  Transmission Date: 20090109
  Serious: Yes (Death, Hospitalization)
  Sender: FDA-Public Use
  Company Number: ZA-BRISTOL-MYERS SQUIBB COMPANY-14323539

PATIENT
  Age: 26 Year
  Sex: Male
  Weight: 55 kg

DRUGS (3)
  1. EFAVIRENZ [Suspect]
     Indication: HIV INFECTION
     Route: 048
     Dates: start: 20080723, end: 20080817
  2. TRUVADA [Suspect]
     Indication: HIV INFECTION
     Route: 048
     Dates: start: 20080723, end: 20080817
  3. RIFAFOUR [Concomitant]
     Indication: TUBERCULOSIS
     Dates: start: 20080709, end: 20080817

REACTIONS (3)
  - ANAEMIA [None]
  - IMMUNE RECONSTITUTION SYNDROME [None]
  - PULMONARY TUBERCULOSIS [None]
